FAERS Safety Report 22088850 (Version 1)
Quarter: 2023Q1

REPORT INFORMATION
  Report Type: Spontaneous
  Country: US (occurrence: None)
  Receive Date: 20230310
  Receipt Date: 20230310
  Transmission Date: 20230418
  Serious: Yes (Other)
  Sender: FDA-Public Use
  Company Number: None

PATIENT
  Age: 76 Year
  Sex: Male
  Weight: 81.2 kg

DRUGS (2)
  1. ROCURONIUM [Suspect]
     Active Substance: ROCURONIUM BROMIDE
     Indication: Cholecystectomy
     Dosage: FREQUENCY : AS NEEDED;?
     Route: 040
     Dates: start: 20230310, end: 20230310
  2. ROCURONIUM [Suspect]
     Active Substance: ROCURONIUM BROMIDE
     Indication: Cholecystectomy
     Dosage: FREQUENCY : AS NEEDED;?
     Route: 040
     Dates: start: 20230310, end: 20230310

REACTIONS (2)
  - Dyspnoea [None]
  - Product quality issue [None]

NARRATIVE: CASE EVENT DATE: 20230310
